FAERS Safety Report 4531574-8 (Version None)
Quarter: 2004Q4

REPORT INFORMATION
  Report Type: 
  Country: None (occurrence: None)
  Receive Date: 20041220
  Receipt Date: 20041208
  Transmission Date: 20050328
  Serious: Yes (Death, Other)
  Sender: FDA-Public Use
  Company Number: 200419426US

PATIENT
  Sex: Female
  Weight: 45.4 kg

DRUGS (2)
  1. TAXOTERE [Suspect]
     Indication: BREAST CANCER FEMALE
     Dosage: DOSE: UNK
  2. ANALGESICS [Concomitant]
     Dosage: DOSE: UNK

REACTIONS (3)
  - DYSPNOEA [None]
  - LACRIMATION INCREASED [None]
  - PULMONARY OEDEMA [None]
